FAERS Safety Report 6747853-X (Version None)
Quarter: 2010Q2

REPORT INFORMATION
  Report Type: 
  Country: None (occurrence: None)
  Receive Date: 20100528
  Receipt Date: 20100518
  Transmission Date: 20101027
  Serious: Yes (Other)
  Sender: FDA-Public Use
  Company Number: US-JNJCH-2010011733

PATIENT
  Age: 16 Year
  Sex: Male
  Weight: 49.9 kg

DRUGS (1)
  1. LISTERINE WHITENING PRE-BRUSH RINSE [Suspect]
     Indication: DENTAL CARE
     Dosage: TEXT:15ML 2X PER DAY
     Route: 048
     Dates: start: 20100421, end: 20100422

REACTIONS (1)
  - SALIVARY DUCT OBSTRUCTION [None]
